FAERS Safety Report 8213251-5 (Version None)
Quarter: 2012Q1

REPORT INFORMATION
  Report Type: 
  Country: None (occurrence: None)
  Receive Date: 20120315
  Receipt Date: 20120314
  Transmission Date: 20120608
  Serious: Yes (Hospitalization)
  Sender: FDA-Public Use
  Company Number: IE-BAXTER-2012BH006366

PATIENT
  Age: 17 Month
  Sex: Female
  Weight: 9 kg

DRUGS (6)
  1. EXTRANEAL [Suspect]
     Indication: PERITONEAL DIALYSIS
     Route: 033
     Dates: start: 20120209, end: 20120213
  2. PHYSIOSOL IN PLASTIC CONTAINER [Suspect]
     Route: 033
  3. PHYSIOSOL IN PLASTIC CONTAINER [Suspect]
     Route: 033
  4. PHYSIOSOL IN PLASTIC CONTAINER [Suspect]
     Indication: PERITONEAL DIALYSIS
     Route: 033
  5. EXTRANEAL [Suspect]
     Route: 033
     Dates: start: 20120214, end: 20120229
  6. HEPARIN [Concomitant]
     Indication: PRODUCT USED FOR UNKNOWN INDICATION
     Route: 065
     Dates: start: 20120301

REACTIONS (2)
  - CONSTIPATION [None]
  - WEIGHT INCREASED [None]
